FAERS Safety Report 24582203 (Version 1)
Quarter: 2024Q4

REPORT INFORMATION
  Report Type: Spontaneous
  Country: US (occurrence: US)
  Receive Date: 20241105
  Receipt Date: 20241105
  Transmission Date: 20250115
  Serious: Yes (Hospitalization)
  Sender: JOHNSON AND JOHNSON
  Company Number: US-JNJFOC-20241076444

PATIENT
  Sex: Male

DRUGS (1)
  1. SIMPONI ARIA [Suspect]
     Active Substance: GOLIMUMAB
     Indication: Product used for unknown indication
     Route: 040
     Dates: start: 20241002

REACTIONS (6)
  - Gait inability [Unknown]
  - Muscular weakness [Unknown]
  - Fatigue [Unknown]
  - Tremor [Unknown]
  - Peripheral swelling [Unknown]
  - Diaphragmalgia [Unknown]

NARRATIVE: CASE EVENT DATE: 20241015
